FAERS Safety Report 12165246 (Version 2)
Quarter: 2016Q1

REPORT INFORMATION
  Report Type: Spontaneous
  Country: US (occurrence: US)
  Receive Date: 20160309
  Receipt Date: 20160310
  Transmission Date: 20160526
  Serious: Yes (Other)
  Sender: FDA-Public Use
  Company Number: US-SA-2016SA044045

PATIENT
  Age: 59 Year
  Sex: Female

DRUGS (1)
  1. GOLD BOND INTENSIVE HEALING ANTI ITCH SKIN PROTECTANT [Suspect]
     Active Substance: DIMETHICONE\PRAMOXINE HYDROCHLORIDE
     Route: 065
     Dates: start: 20160216

REACTIONS (4)
  - Skin exfoliation [Unknown]
  - Burning sensation [Unknown]
  - Pain [Unknown]
  - Application site burn [Unknown]

NARRATIVE: CASE EVENT DATE: 20160216
